FAERS Safety Report 9291742 (Version 1)
Quarter: 2013Q2

REPORT INFORMATION
  Report Type: Spontaneous
  Country: US (occurrence: US)
  Receive Date: 20130516
  Receipt Date: 20130516
  Transmission Date: 20140414
  Serious: No
  Sender: FDA-Public Use
  Company Number: US-009507513-1305USA006796

PATIENT
  Sex: Male

DRUGS (4)
  1. PROPECIA [Suspect]
     Indication: ALOPECIA
     Dosage: UNK
     Route: 048
  2. MINOXIDIL [Concomitant]
  3. ABILIFY [Concomitant]
  4. LAMICTAL [Concomitant]

REACTIONS (1)
  - Alopecia [Unknown]
